FAERS Safety Report 14308199 (Version 1)
Quarter: 2017Q4

REPORT INFORMATION
  Report Type: Spontaneous
  Country: SE (occurrence: SE)
  Receive Date: 20171219
  Receipt Date: 20171219
  Transmission Date: 20180321
  Serious: Yes (Disabling, Other)
  Sender: FDA-Public Use
  Company Number: None

PATIENT
  Sex: Female
  Weight: 45 kg

DRUGS (1)
  1. TOPICAL STERIODS [Suspect]
     Active Substance: UNSPECIFIED INGREDIENT
     Indication: ECZEMA

REACTIONS (9)
  - Pruritus [None]
  - Pain of skin [None]
  - Swelling face [None]
  - Skin disorder [None]
  - Secretion discharge [None]
  - Erythema [None]
  - Therapy cessation [None]
  - Skin burning sensation [None]
  - Crying [None]

NARRATIVE: CASE EVENT DATE: 20140301
